FAERS Safety Report 14541882 (Version 1)
Quarter: 2018Q1

REPORT INFORMATION
  Report Type: Spontaneous
  Country: US (occurrence: US)
  Receive Date: 20180216
  Receipt Date: 20180216
  Transmission Date: 20180509
  Serious: No
  Sender: FDA-Public Use
  Company Number: US-BAUSCH-BL-2017-010728

PATIENT
  Age: 34 Year
  Sex: Male
  Weight: 68.55 kg

DRUGS (1)
  1. NEOMYCIN AND POLYMYXIN B SULFATES AND HYDROCORTISONE [Suspect]
     Active Substance: HYDROCORTISONE\NEOMYCIN SULFATE\POLYMYXIN B SULFATE
     Indication: HORDEOLUM
     Dosage: APPLIED 3 DROPS IN THE LEFT EYE ONCE
     Route: 047
     Dates: start: 20170420

REACTIONS (7)
  - Eyelid oedema [Not Recovered/Not Resolved]
  - Eyelid irritation [Recovering/Resolving]
  - Drug prescribing error [Unknown]
  - Off label use [Unknown]
  - Dysgeusia [Recovered/Resolved]
  - Erythema of eyelid [Not Recovered/Not Resolved]
  - Incorrect route of drug administration [Unknown]

NARRATIVE: CASE EVENT DATE: 20170420
